FAERS Safety Report 5104905-8 (Version None)
Quarter: 2006Q3

REPORT INFORMATION
  Report Type: 
  Country: None (occurrence: None)
  Receive Date: 20060914
  Receipt Date: 20060822
  Transmission Date: 20061208
  Serious: Yes (Hospitalization)
  Sender: FDA-Public Use
  Company Number: GB-ROCHE-462251

PATIENT
  Age: 40 Year
  Sex: Female
  Weight: 65 kg

DRUGS (2)
  1. GRANISETRON HYDROCHLORIDE [Suspect]
     Indication: NAUSEA
     Route: 042
     Dates: start: 20060627, end: 20060627
  2. KETOROLAC TROMETHAMINE [Suspect]
     Indication: ANALGESIC THERAPY
     Route: 042
     Dates: start: 20060627, end: 20060627

REACTIONS (2)
  - DYSKINESIA [None]
  - HYPERVENTILATION [None]
